FAERS Safety Report 4957712-0 (Version None)
Quarter: 2006Q1

REPORT INFORMATION
  Report Type: 
  Country: None (occurrence: None)
  Receive Date: 20060330
  Receipt Date: 20060320
  Transmission Date: 20060701
  Serious: Yes (Other)
  Sender: FDA-Public Use
  Company Number: DE-JNJFOC-20060305510

PATIENT
  Age: 40 Year
  Sex: Female

DRUGS (3)
  1. RISPERDAL [Suspect]
     Route: 048
  2. RISPERDAL [Suspect]
     Route: 048
  3. ZYPREXA [Suspect]
     Route: 048

REACTIONS (2)
  - CIRCULATORY COLLAPSE [None]
  - LOSS OF CONSCIOUSNESS [None]
